FAERS Safety Report 18147759 (Version 1)
Quarter: 2020Q3

REPORT INFORMATION
  Report Type: Spontaneous
  Country: CN (occurrence: CN)
  Receive Date: 20200814
  Receipt Date: 20200814
  Transmission Date: 20201103
  Serious: Yes (Other)
  Sender: FDA-Public Use
  Company Number: CN-BRISTOL-MYERS SQUIBB COMPANY-BMS-2020-065159

PATIENT
  Age: 63 Year
  Sex: Male
  Weight: 46 kg

DRUGS (3)
  1. MONOAMMONIUM GLYCYRRHIZINATE AND CYSTEINE AND SODIUM CHLORIDE [Suspect]
     Active Substance: AMMONIUM GLYCYRRHIZATE\CYSTEINE
     Indication: CEREBRAL HAEMORRHAGE
     Dosage: 100 MILLILITER, QD
     Route: 041
     Dates: start: 20200727, end: 20200728
  2. BARACLUDE [Suspect]
     Active Substance: ENTECAVIR
     Indication: ANTIVIRAL TREATMENT
     Dosage: 0.5 MILLIGRAM, QD
     Route: 048
     Dates: start: 20200724, end: 20200728
  3. BARACLUDE [Suspect]
     Active Substance: ENTECAVIR
     Dosage: 0.5 MILLIGRAM, QD
     Route: 048
     Dates: start: 20200803

REACTIONS (1)
  - Purpura [Recovered/Resolved]

NARRATIVE: CASE EVENT DATE: 20200728
